FAERS Safety Report 21847318 (Version 1)
Quarter: 2023Q1

REPORT INFORMATION
  Report Type: Spontaneous
  Country: US (occurrence: US)
  Receive Date: 20230111
  Receipt Date: 20230111
  Transmission Date: 20230417
  Serious: Yes (Life-Threatening, Hospitalization, Other)
  Sender: FDA-Public Use
  Company Number: US-HETEROHET2021US-01229

PATIENT
  Age: 7 Decade
  Sex: Male

DRUGS (8)
  1. LEVETIRACETAM [Suspect]
     Active Substance: LEVETIRACETAM
     Indication: Product used for unknown indication
  2. BACLOFEN [Suspect]
     Active Substance: BACLOFEN
     Indication: Product used for unknown indication
     Dosage: THREE TIMES PER DAY, INTERVAL AS NECESSARY
  3. CARBAMAZEPINE [Suspect]
     Active Substance: CARBAMAZEPINE
     Indication: Product used for unknown indication
  4. LITHIUM [Suspect]
     Active Substance: LITHIUM
     Indication: Product used for unknown indication
  5. CARVEDILOL [Suspect]
     Active Substance: CARVEDILOL
     Indication: Product used for unknown indication
     Dosage: 3.125 MG
  6. MIRTAZAPINE [Concomitant]
     Active Substance: MIRTAZAPINE
     Dosage: AT NIGHT
  7. CLONAZEPAM [Concomitant]
     Active Substance: CLONAZEPAM
  8. ATORVASTATIN [Concomitant]
     Active Substance: ATORVASTATIN

REACTIONS (8)
  - Hypotension [Recovering/Resolving]
  - Nervous system disorder [Recovering/Resolving]
  - Overdose [Unknown]
  - Toxicity to various agents [Unknown]
  - Fall [Unknown]
  - Conduction disorder [Recovering/Resolving]
  - Sinus node dysfunction [Recovering/Resolving]
  - Acute kidney injury [Recovering/Resolving]
